FAERS Safety Report 5965318-X (Version None)
Quarter: 2008Q4

REPORT INFORMATION
  Report Type: 
  Country: None (occurrence: None)
  Receive Date: 20081125
  Receipt Date: 20081119
  Transmission Date: 20090506
  Serious: Yes (Hospitalization)
  Sender: FDA-Public Use
  Company Number: NL-ABBOTT-08P-114-0488449-00

PATIENT
  Age: 51 Year
  Sex: Female

DRUGS (3)
  1. ADALIMUMAB [Suspect]
     Indication: RHEUMATOID ARTHRITIS
  2. ATENOLOL [Concomitant]
     Indication: HYPERTENSION
     Dosage: NOT REPORTED
  3. ANGIOTENSION-CONVERTING ENZYME INHIBITOR [Concomitant]
     Indication: HYPERTENSION
     Dosage: NOT REPORTED

REACTIONS (1)
  - RASH PUSTULAR [None]
